FAERS Safety Report 9630590 (Version 1)
Quarter: 2013Q4

REPORT INFORMATION
  Report Type: Spontaneous
  Country: US (occurrence: None)
  Receive Date: 20131016
  Receipt Date: 20131016
  Transmission Date: 20140711
  Serious: Yes (Death, Other)
  Sender: FDA-Public Use
  Company Number: 2013-US-001761

PATIENT
  Age: 53 Year
  Sex: Male

DRUGS (4)
  1. FAZACLO [Suspect]
     Indication: PSYCHOTIC DISORDER
     Route: 048
  2. COGENTIN (BENZATROPINE MESILATE) [Concomitant]
  3. HALDOL (HALOPERIDOL LACTATE) [Concomitant]
  4. PAXIL (PAROXETINE HYDROCHLORIDE) [Concomitant]

REACTIONS (6)
  - Cardiac arrest [None]
  - Convulsion [None]
  - Nausea [None]
  - Vomiting [None]
  - Dehydration [None]
  - Asthenia [None]
